FAERS Safety Report 7505129-7 (Version None)
Quarter: 2011Q2

REPORT INFORMATION
  Report Type: 
  Country: None (occurrence: None)
  Receive Date: 20110526
  Receipt Date: 20110516
  Transmission Date: 20111010
  Serious: Yes (Other)
  Sender: FDA-Public Use
  Company Number: US-BIOGENIDEC-2011BI018970

PATIENT
  Age: 41 Year
  Sex: Female

DRUGS (4)
  1. AVONEX [Suspect]
     Route: 030
     Dates: start: 20081001, end: 20090101
  2. SOLU-MEDROL [Concomitant]
     Route: 042
  3. AVONEX [Suspect]
     Indication: MULTIPLE SCLEROSIS
     Route: 030
     Dates: start: 19990101, end: 20020101
  4. AVONEX [Suspect]
     Route: 030
     Dates: start: 20060101, end: 20080101

REACTIONS (4)
  - MUSCLE INJURY [None]
  - MULTIPLE SCLEROSIS RELAPSE [None]
  - ANAPHYLACTIC REACTION [None]
  - MYALGIA [None]
